FAERS Safety Report 16252959 (Version 2)
Quarter: 2019Q2

REPORT INFORMATION
  Report Type: Spontaneous
  Country: US (occurrence: US)
  Receive Date: 20190429
  Receipt Date: 20190628
  Transmission Date: 20190711
  Serious: No
  Sender: FDA-Public Use
  Company Number: US-TEVA-2019-US-1038733

PATIENT
  Age: 78 Year
  Sex: Female

DRUGS (3)
  1. TRIMETHOPRIM. [Concomitant]
     Active Substance: TRIMETHOPRIM
     Dosage: 100 MG 1 EVERY OTHER DAY
  2. PRAVASTATIN SODIUM TABLETS, USP TEVA [Suspect]
     Active Substance: PRAVASTATIN SODIUM
     Indication: BLOOD CHOLESTEROL ABNORMAL
     Route: 065
     Dates: start: 20181115, end: 20190115
  3. PRAVASTATIN SODIUM TABLETS, USP TEVA [Suspect]
     Active Substance: PRAVASTATIN SODIUM
     Route: 065
     Dates: start: 20190403, end: 20190408

REACTIONS (3)
  - Arthralgia [Recovered/Resolved]
  - Pain in extremity [Recovered/Resolved]
  - Muscle spasms [Recovered/Resolved]

NARRATIVE: CASE EVENT DATE: 201811
